FAERS Safety Report 4556732-8 (Version None)
Quarter: 2005Q1

REPORT INFORMATION
  Report Type: 
  Country: None (occurrence: None)
  Receive Date: 20050114
  Receipt Date: 20041230
  Transmission Date: 20050727
  Serious: Yes (Hospitalization)
  Sender: FDA-Public Use
  Company Number: SP00378

PATIENT
  Age: 42 Year
  Sex: Female
  Weight: 58.9676 kg

DRUGS (3)
  1. COLAZAL [Suspect]
     Indication: COLITIS ULCERATIVE
     Dosage: 3G/BID, ORAL
     Route: 048
     Dates: start: 20020101, end: 20041201
  2. PREDNISONE [Concomitant]
  3. FIBERCON [Concomitant]

REACTIONS (10)
  - EMPYEMA [None]
  - EOSINOPHILIC PNEUMONIA ACUTE [None]
  - HYPERPLASIA [None]
  - PLEURAL ADHESION [None]
  - PLEURAL FIBROSIS [None]
  - PNEUMONITIS [None]
  - PNEUMOTHORAX [None]
  - PULMONARY FIBROSIS [None]
  - PULMONARY GRANULOMA [None]
  - PULMONARY OEDEMA [None]
